FAERS Safety Report 9068551 (Version 1)
Quarter: 2013Q1

REPORT INFORMATION
  Report Type: Spontaneous
  Country: US (occurrence: None)
  Receive Date: 20130212
  Receipt Date: 20130212
  Transmission Date: 20140127
  Serious: Yes (Other)
  Sender: FDA-Public Use
  Company Number: None

PATIENT
  Sex: Female

DRUGS (1)
  1. ORENCIA 125MG BRISTOL-MYERS SQUIBB [Suspect]
     Indication: RHEUMATOID ARTHRITIS
     Dosage: 125MG  QW  SQ
     Route: 058
     Dates: start: 201210, end: 20130111

REACTIONS (6)
  - Nausea [None]
  - Headache [None]
  - Diarrhoea [None]
  - Influenza like illness [None]
  - Weight decreased [None]
  - Hypophagia [None]
